FAERS Safety Report 12260925 (Version 1)
Quarter: 2016Q2

REPORT INFORMATION
  Report Type: Spontaneous
  Country: US (occurrence: US)
  Receive Date: 20160412
  Receipt Date: 20160412
  Transmission Date: 20160815
  Serious: Yes (Other)
  Sender: FDA-Public Use
  Company Number: US-INCYTE CORPORATION-2016IN000429

PATIENT
  Sex: Female

DRUGS (1)
  1. JAKAFI [Suspect]
     Active Substance: RUXOLITINIB
     Indication: MYELOFIBROSIS
     Dosage: 5 MG, BID
     Route: 048
     Dates: start: 201509

REACTIONS (11)
  - Dizziness [Unknown]
  - Haemoglobin decreased [Unknown]
  - Fatigue [Unknown]
  - Platelet count decreased [Unknown]
  - Headache [Unknown]
  - Pruritus generalised [Unknown]
  - Cough [Unknown]
  - Nausea [Unknown]
  - Transfusion [Unknown]
  - Skin discolouration [Unknown]
  - Flatulence [Unknown]
